FAERS Safety Report 21611086 (Version 2)
Quarter: 2023Q2

REPORT INFORMATION
  Report Type: Spontaneous
  Country: US (occurrence: US)
  Receive Date: 20221117
  Receipt Date: 20230621
  Transmission Date: 20230722
  Serious: Yes (Other)
  Sender: FDA-Public Use
  Company Number: US-TAKEDA-2022TUS085241

PATIENT
  Age: 75 Year
  Sex: Female

DRUGS (2)
  1. NINLARO [Suspect]
     Active Substance: IXAZOMIB CITRATE
     Indication: Plasma cell myeloma
     Dosage: 3 MILLIGRAM, Q2WEEKS
     Route: 048
     Dates: start: 20221020
  2. POMALYST [Suspect]
     Active Substance: POMALIDOMIDE
     Indication: Plasma cell myeloma
     Dosage: 2 MILLIGRAM
     Route: 048

REACTIONS (7)
  - Spinal fracture [Unknown]
  - Foot fracture [Unknown]
  - Dizziness [Unknown]
  - Light chain analysis increased [Unknown]
  - Loss of personal independence in daily activities [Unknown]
  - Malaise [Unknown]
  - Product administration error [Unknown]

NARRATIVE: CASE EVENT DATE: 20230605
